FAERS Safety Report 25480290 (Version 2)
Quarter: 2025Q3

REPORT INFORMATION
  Report Type: Spontaneous
  Country: US (occurrence: US)
  Receive Date: 20250625
  Receipt Date: 20250723
  Transmission Date: 20251021
  Serious: Yes (Other)
  Sender: AMERICAN REGENT
  Company Number: US-AMERICAN REGENT INC-2025002468

PATIENT

DRUGS (3)
  1. VENOFER [Suspect]
     Active Substance: IRON SUCROSE
     Indication: Product used for unknown indication
     Route: 042
     Dates: start: 20250524, end: 20250524
  2. VENOFER [Suspect]
     Active Substance: IRON SUCROSE
     Route: 042
     Dates: start: 20250531, end: 20250531
  3. VENOFER [Suspect]
     Active Substance: IRON SUCROSE
     Dates: start: 20250607, end: 20250607

REACTIONS (8)
  - Flushing [Recovered/Resolved]
  - Hypotension [Recovered/Resolved]
  - Rash [Unknown]
  - Peripheral swelling [Unknown]
  - Nausea [Unknown]
  - Dizziness [Unknown]
  - Product quality issue [Unknown]
  - Off label use [Unknown]

NARRATIVE: CASE EVENT DATE: 20250607
